FAERS Safety Report 7082595-5 (Version None)
Quarter: 2010Q3

REPORT INFORMATION
  Report Type: 
  Country: None (occurrence: None)
  Receive Date: 20100929
  Receipt Date: 20100624
  Transmission Date: 20110219
  Serious: No
  Sender: FDA-Public Use
  Company Number: US-WYE-H15925810

PATIENT
  Age: 48 Year
  Sex: Female
  Weight: 78.09 kg

DRUGS (9)
  1. PRISTIQ [Suspect]
     Indication: ANXIETY
     Dosage: 50 MG 1X PER 1 DAY, ORAL, 50 MG 1X PER 1 DAY, ORAL, 100
     Route: 048
     Dates: start: 20090501, end: 20100606
  2. PRISTIQ [Suspect]
     Indication: DEPRESSION
     Dosage: 50 MG 1X PER 1 DAY, ORAL, 50 MG 1X PER 1 DAY, ORAL, 100
     Route: 048
     Dates: start: 20090501, end: 20100606
  3. PRISTIQ [Suspect]
     Indication: ANXIETY
     Dosage: 50 MG 1X PER 1 DAY, ORAL, 50 MG 1X PER 1 DAY, ORAL, 100
     Route: 048
     Dates: start: 20100607, end: 20100618
  4. PRISTIQ [Suspect]
     Indication: DEPRESSION
     Dosage: 50 MG 1X PER 1 DAY, ORAL, 50 MG 1X PER 1 DAY, ORAL, 100
     Route: 048
     Dates: start: 20100607, end: 20100618
  5. PRISTIQ [Suspect]
     Indication: ANXIETY
     Dosage: 50 MG 1X PER 1 DAY, ORAL, 50 MG 1X PER 1 DAY, ORAL, 100
     Route: 048
     Dates: start: 20100621, end: 20100621
  6. PRISTIQ [Suspect]
     Indication: DEPRESSION
     Dosage: 50 MG 1X PER 1 DAY, ORAL, 50 MG 1X PER 1 DAY, ORAL, 100
     Route: 048
     Dates: start: 20100621, end: 20100621
  7. LORAZEPAM [Concomitant]
  8. CLARITIN [Concomitant]
  9. ESTRADIOL [Concomitant]

REACTIONS (14)
  - AGITATION [None]
  - BLOOD PRESSURE INCREASED [None]
  - CONDITION AGGRAVATED [None]
  - DRUG EFFECT DECREASED [None]
  - DRUG WITHDRAWAL SYNDROME [None]
  - FEELING ABNORMAL [None]
  - HYPERHIDROSIS [None]
  - INTENTIONAL DRUG MISUSE [None]
  - IRRITABILITY [None]
  - PARAESTHESIA [None]
  - PRURITUS [None]
  - RASH [None]
  - SKIN BURNING SENSATION [None]
  - URTICARIA [None]
